FAERS Safety Report 18550407 (Version 1)
Quarter: 2020Q4

REPORT INFORMATION
  Report Type: Spontaneous
  Country: FR (occurrence: FR)
  Receive Date: 20201126
  Receipt Date: 20201126
  Transmission Date: 20210114
  Serious: Yes (Hospitalization)
  Sender: FDA-Public Use
  Company Number: FR-TEVA-2020-FR-1851734

PATIENT
  Age: 29 Year
  Sex: Male

DRUGS (1)
  1. PROPRANOLOL [Suspect]
     Active Substance: PROPRANOLOL HYDROCHLORIDE
     Indication: INTENTIONAL OVERDOSE
     Dosage: UNIT DOSE 3400MG
     Route: 048
     Dates: start: 20200926, end: 20200926

REACTIONS (4)
  - Seizure [Recovered/Resolved]
  - Cardiogenic shock [Recovered/Resolved]
  - Hypoperfusion [Recovered/Resolved]
  - Poisoning deliberate [Recovered/Resolved]

NARRATIVE: CASE EVENT DATE: 20200926
